FAERS Safety Report 9538502 (Version 1)
Quarter: 2013Q2

REPORT INFORMATION
  Report Type: Spontaneous
  Country: US (occurrence: None)
  Receive Date: 20130510
  Receipt Date: 20130510
  Transmission Date: 20140414
  Serious: No
  Sender: FDA-Public Use
  Company Number: US-010710

PATIENT
  Age: 73 Year
  Sex: Female
  Weight: 62.6 kg

DRUGS (2)
  1. PICO-SALAX [Suspect]
     Indication: COLONOSCOPY
     Route: 048
     Dates: start: 20130120
  2. NEXIUM [Concomitant]

REACTIONS (1)
  - Drug ineffective [None]
